FAERS Safety Report 17589648 (Version 2)
Quarter: 2021Q2

REPORT INFORMATION
  Report Type: Spontaneous
  Country: US (occurrence: US)
  Receive Date: 20200327
  Receipt Date: 20210413
  Transmission Date: 20210716
  Serious: No
  Sender: FDA-Public Use
  Company Number: US-ALLERGAN-1926511US

PATIENT
  Sex: Female

DRUGS (1)
  1. LATISSE [Suspect]
     Active Substance: BIMATOPROST
     Indication: GROWTH OF EYELASHES
     Dosage: 1 GTT, QHS
     Route: 061
     Dates: start: 2019

REACTIONS (5)
  - Inappropriate schedule of product administration [Unknown]
  - Eye irritation [Recovered/Resolved]
  - Product physical consistency issue [Unknown]
  - Eyelid thickening [Recovered/Resolved]
  - Eyelids pruritus [Recovered/Resolved]
